FAERS Safety Report 9869019 (Version 3)
Quarter: 2014Q2

REPORT INFORMATION
  Report Type: Spontaneous
  Country: IT (occurrence: IT)
  Receive Date: 20140205
  Receipt Date: 20140415
  Transmission Date: 20141212
  Serious: Yes (Hospitalization)
  Sender: FDA-Public Use
  Company Number: IT-RANBAXY-2014RR-77723

PATIENT
  Age: 77 Year
  Sex: Male

DRUGS (10)
  1. PARACETAMOL [Suspect]
     Indication: PAIN IN EXTREMITY
     Dosage: UNK
     Route: 048
     Dates: start: 20131230, end: 20140109
  2. COUMADIN [Interacting]
     Indication: ATRIAL FIBRILLATION
     Dosage: 1 DF, PRN
     Route: 048
     Dates: start: 20070101, end: 20140110
  3. TENORMIN [Concomitant]
     Indication: PRODUCT USED FOR UNKNOWN INDICATION
     Dosage: 0.5 DF, UNK
     Route: 048
  4. FUROSEMIDE DOC GENERICI [Concomitant]
     Indication: PRODUCT USED FOR UNKNOWN INDICATION
     Dosage: 2 DF, UNK
     Route: 048
  5. LUVION [Concomitant]
     Indication: PRODUCT USED FOR UNKNOWN INDICATION
     Dosage: 1 DF, UNK
     Route: 048
  6. PLENDIL [Concomitant]
     Indication: PRODUCT USED FOR UNKNOWN INDICATION
     Dosage: 1 DF, UNK
     Route: 048
  7. SYNFLEX [Concomitant]
     Indication: PAIN IN EXTREMITY
     Dosage: UNK
     Route: 065
     Dates: start: 20131230, end: 20140109
  8. COTAREG [Concomitant]
     Indication: PRODUCT USED FOR UNKNOWN INDICATION
     Dosage: 0.5 DF, UNK
     Route: 065
  9. ALLOPURINOL [Concomitant]
     Indication: PRODUCT USED FOR UNKNOWN INDICATION
     Dosage: 100 MG, UNK
     Route: 048
  10. TAMSULOSIN HYDROCHLORIDE [Concomitant]
     Indication: PRODUCT USED FOR UNKNOWN INDICATION
     Dosage: 0.4 MG, UNK
     Route: 048

REACTIONS (4)
  - Anaemia [Recovered/Resolved]
  - Haemoptysis [Recovered/Resolved]
  - Potentiating drug interaction [Recovered/Resolved]
  - Gingival bleeding [Recovered/Resolved]
